FAERS Safety Report 24214887 (Version 1)
Quarter: 2024Q3

REPORT INFORMATION
  Report Type: Spontaneous
  Country: GB (occurrence: GB)
  Receive Date: 20240815
  Receipt Date: 20240815
  Transmission Date: 20241017
  Serious: Yes (Hospitalization)
  Sender: MERCK
  Company Number: GB-009507513-2408GBR003634

PATIENT
  Age: 68 Year
  Sex: Female
  Weight: 85 kg

DRUGS (13)
  1. KEYTRUDA [Suspect]
     Active Substance: PEMBROLIZUMAB
     Indication: Malignant melanoma
     Dosage: 400 MILLIGRAM TOTAL
     Route: 042
     Dates: start: 20240503, end: 20240503
  2. IPILIMUMAB [Suspect]
     Active Substance: IPILIMUMAB
     Indication: Malignant melanoma
     Dosage: 8 MG TOTAL
     Route: 030
     Dates: start: 20240424, end: 20240424
  3. OMEPRAZOLE [Concomitant]
     Active Substance: OMEPRAZOLE
     Indication: Gastrooesophageal reflux disease
     Dosage: 20 MG QD
     Dates: start: 20130503
  4. CARBOMER [Concomitant]
     Active Substance: CARBOMER
     Indication: Glaucoma
     Dosage: 2 MILLIGRAM AS NEEDED
     Dates: start: 20100526
  5. CANDESARTAN [Concomitant]
     Active Substance: CANDESARTAN
     Indication: Hypertension
     Dosage: 32 MG ONCE A DAY
     Dates: start: 20190812
  6. INDAPAMIDE [Concomitant]
     Active Substance: INDAPAMIDE
     Indication: Hypertension
     Dosage: 1.5 MG DAILY
     Dates: start: 20200305
  7. HYDROMOL [EMULSIFYING WAX;PARAFFIN SOFT;PARAFFIN, LIQUID] [Concomitant]
     Indication: Dry skin
     Dosage: 2.5 % WHEN REQUIRED
     Dates: start: 20220715
  8. BISOPROLOL [Concomitant]
     Active Substance: BISOPROLOL\BISOPROLOL FUMARATE
     Indication: Hypertension
     Dosage: 5 MG ONCE A DAY
     Route: 048
     Dates: start: 20230201
  9. BETAMETHASONE [Concomitant]
     Active Substance: BETAMETHASONE\BETAMETHASONE DIPROPIONATE
     Indication: Rash
     Dosage: UNK UNK, PRN
     Route: 061
     Dates: start: 20230503
  10. CETIRIZINE [Concomitant]
     Active Substance: CETIRIZINE HYDROCHLORIDE
     Indication: Miliaria
     Dosage: 10 MG ONCE A DAY
     Route: 048
     Dates: start: 20230816
  11. FEXOFENADINE [Concomitant]
     Active Substance: FEXOFENADINE HYDROCHLORIDE
     Indication: Rash
     Dosage: 180 MG ONCE A DAY
     Route: 048
     Dates: start: 20230516
  12. NITROFURANTOIN [Concomitant]
     Active Substance: NITROFURANTOIN
     Indication: Urinary tract infection
     Dosage: 100 MILLIGRAM ONCE A DAY
     Route: 048
     Dates: start: 20240419
  13. ACETAMINOPHEN [Concomitant]
     Active Substance: ACETAMINOPHEN
     Indication: Headache
     Dosage: 1 GRAM WHEN REQUIRED
     Route: 048
     Dates: start: 20240427, end: 20240427

REACTIONS (6)
  - Diarrhoea [Recovered/Resolved]
  - Malaise [Unknown]
  - Feeling hot [Unknown]
  - Tremor [Unknown]
  - Fatigue [Unknown]
  - Toxicity to various agents [Unknown]

NARRATIVE: CASE EVENT DATE: 20240522
